FAERS Safety Report 4447354-8 (Version None)
Quarter: 2004Q3

REPORT INFORMATION
  Report Type: 
  Country: None (occurrence: None)
  Receive Date: 20040802
  Receipt Date: 20040621
  Transmission Date: 20050211
  Serious: No
  Sender: FDA-Public Use
  Company Number: 2004-117644-NL

PATIENT
  Age: 27 Year
  Sex: Female
  Weight: 50.9 kg

DRUGS (1)
  1. NUVARING [Suspect]
     Indication: MENSTRUAL DISORDER
     Dosage: DF DAILY VAGINAL
     Route: 067
     Dates: start: 20040613, end: 20040617

REACTIONS (3)
  - AGGRESSION [None]
  - WEIGHT INCREASED [None]
  - WITHDRAWAL BLEED [None]
